FAERS Safety Report 6666119-X (Version None)
Quarter: 2010Q2

REPORT INFORMATION
  Report Type: 
  Country: None (occurrence: None)
  Receive Date: 20100402
  Receipt Date: 20100322
  Transmission Date: 20101027
  Serious: Yes (Hospitalization, Other)
  Sender: FDA-Public Use
  Company Number: US-WATSON-2010-03376

PATIENT
  Sex: Male
  Weight: 81.6 kg

DRUGS (4)
  1. FENTANYL-75 [Suspect]
     Indication: DRUG ABUSE
     Dosage: UNK
     Route: 048
     Dates: start: 20100315, end: 20100315
  2. FENTANYL-75 [Suspect]
     Dosage: UNK
     Route: 042
     Dates: start: 20100315, end: 20100315
  3. FENTANYL-25 [Suspect]
     Indication: DRUG ABUSE
     Dosage: UNK
     Route: 048
     Dates: start: 20100315, end: 20100315
  4. FENTANYL-25 [Suspect]
     Dosage: UNK
     Route: 042
     Dates: start: 20100315, end: 20100315

REACTIONS (5)
  - CONVULSION [None]
  - IMPRISONMENT [None]
  - INTENTIONAL DRUG MISUSE [None]
  - LOSS OF CONSCIOUSNESS [None]
  - POISONING [None]
